FAERS Safety Report 12665965 (Version 2)
Quarter: 2016Q3

REPORT INFORMATION
  Report Type: Report from Study
  Country: US (occurrence: US)
  Receive Date: 20160818
  Receipt Date: 20160823
  Transmission Date: 20161109
  Serious: Yes (Hospitalization, Other)
  Sender: FDA-Public Use
  Company Number: US-GILEAD-2016-0221418

PATIENT
  Age: 92 Year
  Sex: Female

DRUGS (4)
  1. AMBRISENTAN [Suspect]
     Active Substance: AMBRISENTAN
     Dosage: 5 MG (1/2 DF), UNK
     Route: 065
  2. AMBRISENTAN [Suspect]
     Active Substance: AMBRISENTAN
     Dosage: 10 MG (1 DF), UNK
     Route: 065
  3. AMBRISENTAN [Suspect]
     Active Substance: AMBRISENTAN
     Indication: PULMONARY ARTERIAL HYPERTENSION
     Dosage: 5 MG, UNK
     Route: 065
     Dates: start: 20160718
  4. AMBRISENTAN [Suspect]
     Active Substance: AMBRISENTAN
     Dosage: 5 MG, QD
     Route: 065
     Dates: start: 20160719, end: 20160816

REACTIONS (7)
  - Oedema [Not Recovered/Not Resolved]
  - Drug ineffective [Unknown]
  - Wrong technique in product usage process [Unknown]
  - Peripheral swelling [Unknown]
  - Fluid retention [Unknown]
  - Dyspnoea [Not Recovered/Not Resolved]
  - Swelling [Unknown]

NARRATIVE: CASE EVENT DATE: 201607
